FAERS Safety Report 23367059 (Version 1)
Quarter: 2024Q1

REPORT INFORMATION
  Report Type: Report from Study
  Country: US (occurrence: None)
  Receive Date: 20240104
  Receipt Date: 20240104
  Transmission Date: 20240409
  Serious: Yes (Hospitalization, Other)
  Sender: FDA-Public Use
  Company Number: 2023A295913

PATIENT
  Sex: Female

DRUGS (1)
  1. SYMBICORT [Suspect]
     Active Substance: BUDESONIDE\FORMOTEROL FUMARATE DIHYDRATE
     Dosage: 160 UG UNKNOWN
     Route: 055

REACTIONS (15)
  - Cardiac disorder [Unknown]
  - Haemorrhage intracranial [Unknown]
  - Fall [Unknown]
  - Gait inability [Unknown]
  - Joint injury [Unknown]
  - Arthralgia [Unknown]
  - Peripheral swelling [Unknown]
  - Haemorrhage [Unknown]
  - Head injury [Unknown]
  - Injury [Unknown]
  - Visual impairment [Unknown]
  - Asthma [Unknown]
  - Chronic obstructive pulmonary disease [Unknown]
  - Illness [Unknown]
  - Product dose omission issue [Unknown]
